FAERS Safety Report 8375025-4 (Version None)
Quarter: 2012Q2

REPORT INFORMATION
  Report Type: 
  Country: None (occurrence: None)
  Receive Date: 20120521
  Receipt Date: 20120511
  Transmission Date: 20120825
  Serious: Yes (Hospitalization)
  Sender: FDA-Public Use
  Company Number: US-ABBOTT-12P-163-0935022-00

PATIENT
  Sex: Female

DRUGS (2)
  1. HUMIRA [Suspect]
     Route: 058
     Dates: start: 20091118
  2. HUMIRA [Suspect]
     Indication: JUVENILE ARTHRITIS
     Route: 058
     Dates: start: 20090819

REACTIONS (6)
  - WEIGHT DECREASED [None]
  - SYSTEMIC LUPUS ERYTHEMATOSUS [None]
  - NIGHT SWEATS [None]
  - ARTHRALGIA [None]
  - JOINT SWELLING [None]
  - PYREXIA [None]
